FAERS Safety Report 7830023-1 (Version None)
Quarter: 2011Q4

REPORT INFORMATION
  Report Type: 
  Country: None (occurrence: None)
  Receive Date: 20111018
  Receipt Date: 20111013
  Transmission Date: 20120403
  Serious: Yes (Hospitalization)
  Sender: FDA-Public Use
  Company Number: SP05068

PATIENT
  Age: 88 Year
  Sex: Female
  Weight: 49.8957 kg

DRUGS (2)
  1. XIFAXAN [Suspect]
     Indication: INTESTINAL OBSTRUCTION
     Dosage: 400;600 MG (200 MG, 2 IN 1 D; 3 IN 1 D), ORAL
     Route: 048
     Dates: start: 20090101
  2. XIFAXAN [Suspect]
     Indication: INTESTINAL OBSTRUCTION
     Dosage: 400;600 MG (200 MG, 2 IN 1 D; 3 IN 1 D), ORAL
     Route: 048
     Dates: start: 20080101, end: 20090101

REACTIONS (2)
  - ABDOMINAL PAIN UPPER [None]
  - INTESTINAL OBSTRUCTION [None]
